FAERS Safety Report 12008004 (Version 1)
Quarter: 2016Q1

REPORT INFORMATION
  Report Type: Spontaneous
  Country: US (occurrence: US)
  Receive Date: 20160205
  Receipt Date: 20160205
  Transmission Date: 20160526
  Serious: No
  Sender: FDA-Public Use
  Company Number: US-BIOGEN-2013BI019274

PATIENT
  Age: 50 Year
  Sex: Female

DRUGS (7)
  1. AVONEX [Suspect]
     Active Substance: INTERFERON BETA-1A
     Indication: MULTIPLE SCLEROSIS
     Route: 030
  2. AVONEX [Suspect]
     Active Substance: INTERFERON BETA-1A
     Route: 030
     Dates: end: 20130301
  3. AVONEX [Suspect]
     Active Substance: INTERFERON BETA-1A
     Route: 030
     Dates: start: 20130308, end: 20130501
  4. AVONEX [Suspect]
     Active Substance: INTERFERON BETA-1A
     Route: 030
     Dates: start: 20130508
  5. AVONEX [Suspect]
     Active Substance: INTERFERON BETA-1A
     Route: 030
     Dates: start: 201303, end: 201305
  6. AVONEX [Suspect]
     Active Substance: INTERFERON BETA-1A
     Route: 030
     Dates: start: 20060613, end: 20120301
  7. AMPYRA [Concomitant]
     Active Substance: DALFAMPRIDINE
     Indication: MULTIPLE SCLEROSIS
     Route: 048
     Dates: start: 2013, end: 2013

REACTIONS (10)
  - Myopia [Not Recovered/Not Resolved]
  - Influenza like illness [Recovered/Resolved]
  - Gait disturbance [Recovered/Resolved]
  - Photopsia [Recovered/Resolved with Sequelae]
  - Fatigue [Recovered/Resolved]
  - Adverse drug reaction [Unknown]
  - Drug dose omission [Recovered/Resolved]
  - Drug ineffective [Not Recovered/Not Resolved]
  - Mobility decreased [Unknown]
  - Alopecia [Not Recovered/Not Resolved]

NARRATIVE: CASE EVENT DATE: 201212
